FAERS Safety Report 20631041 (Version 1)
Quarter: 2022Q1

REPORT INFORMATION
  Report Type: Report from Study
  Country: US (occurrence: US)
  Receive Date: 20220324
  Receipt Date: 20220324
  Transmission Date: 20220423
  Serious: Yes (Hospitalization, Other)
  Sender: FDA-Public Use
  Company Number: US-ABBVIE-21K-163-4030961-00

PATIENT
  Sex: Male

DRUGS (5)
  1. HUMIRA [Suspect]
     Active Substance: ADALIMUMAB
     Indication: Psoriatic arthropathy
     Route: 058
     Dates: end: 202108
  2. HUMIRA [Suspect]
     Active Substance: ADALIMUMAB
     Route: 058
     Dates: start: 20210922
  3. HUMIRA [Suspect]
     Active Substance: ADALIMUMAB
     Route: 058
     Dates: start: 2022
  4. PFIZER-BIONTECH COVID-19 VACCINE [Suspect]
     Active Substance: TOZINAMERAN
     Indication: COVID-19 immunisation
     Dosage: SHOT 1?PFIZER
     Route: 030
     Dates: start: 20210731, end: 20210731
  5. PFIZER-BIONTECH COVID-19 VACCINE [Suspect]
     Active Substance: TOZINAMERAN
     Dosage: SHOT 2?PFIZER
     Route: 030
     Dates: start: 20210820, end: 20210820

REACTIONS (8)
  - Limb reconstructive surgery [Recovering/Resolving]
  - Exposure to SARS-CoV-2 [Unknown]
  - Road traffic accident [Unknown]
  - Anxiety [Not Recovered/Not Resolved]
  - Hypoaesthesia [Recovering/Resolving]
  - Migraine [Unknown]
  - Hangover [Unknown]
  - Injection site discolouration [Unknown]

NARRATIVE: CASE EVENT DATE: 20020101
